FAERS Safety Report 4808604-9 (Version None)
Quarter: 2005Q4

REPORT INFORMATION
  Report Type: 
  Country: None (occurrence: None)
  Receive Date: 20051025
  Receipt Date: 20051020
  Transmission Date: 20060501
  Serious: Yes (Other)
  Sender: FDA-Public Use
  Company Number: ES-GLAXOSMITHKLINE-B0398200A

PATIENT
  Sex: Female

DRUGS (1)
  1. ZYNTABAC [Suspect]
     Dates: start: 20050101, end: 20050101

REACTIONS (3)
  - ANAPHYLACTIC SHOCK [None]
  - CARDIOPULMONARY FAILURE [None]
  - SKIN SWELLING [None]
